FAERS Safety Report 8480726-3 (Version None)
Quarter: 2012Q2

REPORT INFORMATION
  Report Type: 
  Country: None (occurrence: None)
  Receive Date: 20120626
  Receipt Date: 20120626
  Transmission Date: 20120825
  Serious: No
  Sender: FDA-Public Use
  Company Number: None

PATIENT
  Sex: Female
  Weight: 78.9259 kg

DRUGS (1)
  1. EFFEXOR [Suspect]
     Indication: DEPRESSION

REACTIONS (5)
  - PRODUCT SUBSTITUTION ISSUE [None]
  - ANHEDONIA [None]
  - AFFECT LABILITY [None]
  - FEELINGS OF WORTHLESSNESS [None]
  - CRYING [None]
